FAERS Safety Report 11376896 (Version 1)
Quarter: 2015Q3

REPORT INFORMATION
  Report Type: Spontaneous
  Country: US (occurrence: US)
  Receive Date: 20150813
  Receipt Date: 20150813
  Transmission Date: 20151125
  Serious: No
  Sender: FDA-Public Use
  Company Number: US-TARO-2015TAR00463

PATIENT
  Age: 89 Year
  Sex: Female
  Weight: 50.34 kg

DRUGS (2)
  1. DESONIDE CREAM USP 0.05% [Suspect]
     Active Substance: DESONIDE
     Indication: HYPERSENSITIVITY
     Dosage: 1 DOSAGE UNITS, ONCE
     Route: 061
     Dates: start: 20150514, end: 20150514
  2. UNSPECIFIED CONCOMITANT MEDICATION(S) [Concomitant]

REACTIONS (3)
  - Application site pruritus [Recovered/Resolved]
  - Application site erythema [Unknown]
  - Application site pain [Recovered/Resolved]

NARRATIVE: CASE EVENT DATE: 20150514
